FAERS Safety Report 16754563 (Version 1)
Quarter: 2019Q3

REPORT INFORMATION
  Report Type: Report from Study
  Country: PT (occurrence: PT)
  Receive Date: 20190829
  Receipt Date: 20190829
  Transmission Date: 20191005
  Serious: Yes (Hospitalization, Disabling)
  Sender: FDA-Public Use
  Company Number: PT-ROCHE-2153545

PATIENT
  Sex: Male

DRUGS (4)
  1. ROACTEMRA [Suspect]
     Active Substance: TOCILIZUMAB
     Dosage: ON FRIDAYS
     Route: 058
  2. ROACTEMRA [Suspect]
     Active Substance: TOCILIZUMAB
     Indication: RHEUMATOID ARTHRITIS
     Dosage: ON FRIDAYS
     Route: 058
     Dates: start: 20180629
  3. ROACTEMRA [Suspect]
     Active Substance: TOCILIZUMAB
     Dosage: LAST INJECTION.
     Route: 058
     Dates: start: 20180727
  4. CORTISONE [Concomitant]
     Active Substance: CORTISONE
     Dosage: 2 TABLETS IN THE MORNING+2 TABLETS AT NIGHT
     Route: 048

REACTIONS (9)
  - Rash macular [Recovered/Resolved]
  - Anaemia [Recovered/Resolved]
  - Arthropathy [Recovering/Resolving]
  - Gait disturbance [Recovered/Resolved]
  - Peripheral swelling [Recovering/Resolving]
  - Spinal disorder [Not Recovered/Not Resolved]
  - Drug ineffective [Unknown]
  - Pain [Not Recovered/Not Resolved]
  - Arthralgia [Recovering/Resolving]

NARRATIVE: CASE EVENT DATE: 20180629
